FAERS Safety Report 5191365-4 (Version None)
Quarter: 2006Q4

REPORT INFORMATION
  Report Type: 
  Country: None (occurrence: None)
  Receive Date: 20061220
  Receipt Date: 20061220
  Transmission Date: 20070319
  Serious: Yes (Hospitalization)
  Sender: FDA-Public Use
  Company Number: None

PATIENT
  Age: 52 Year
  Sex: Female
  Weight: 78.2 kg

DRUGS (1)
  1. SUTENT [Suspect]
     Indication: LEIOMYOSARCOMA METASTATIC
     Dosage: 500 MG  ONCE A DAY  PO
     Route: 048
     Dates: start: 20061205, end: 20061218

REACTIONS (6)
  - ACQUIRED DIAPHRAGMATIC EVENTRATION [None]
  - ASTHENIA [None]
  - ATELECTASIS [None]
  - DISEASE PROGRESSION [None]
  - PNEUMONIA [None]
  - VOMITING [None]
